FAERS Safety Report 5043878-3 (Version None)
Quarter: 2006Q3

REPORT INFORMATION
  Report Type: 
  Country: None (occurrence: None)
  Receive Date: 20060706
  Receipt Date: 20060627
  Transmission Date: 20061208
  Serious: Yes (Hospitalization)
  Sender: FDA-Public Use
  Company Number: US-BRISTOL-MYERS SQUIBB COMPANY-13425392

PATIENT
  Age: 67 Year
  Sex: Female

DRUGS (3)
  1. WARFARIN SODIUM [Suspect]
     Indication: ATRIAL FIBRILLATION
     Dosage: DURATION: 2.5 YEARS, CURRENTLY WAS TAKING 1/2 TAB DAILY
  2. BLOOD PRESSURE PILL [Concomitant]
  3. DIURETIC [Concomitant]

REACTIONS (6)
  - BLOOD PRESSURE INCREASED [None]
  - DEHYDRATION [None]
  - DRUG LEVEL INCREASED [None]
  - HAEMATOMA [None]
  - JOINT INJURY [None]
  - SKIN GRAFT [None]
